FAERS Safety Report 25807914 (Version 1)
Quarter: 2025Q3

REPORT INFORMATION
  Report Type: Other
  Country: EU (occurrence: EU)
  Receive Date: 20250916
  Receipt Date: 20250916
  Transmission Date: 20251021
  Serious: Yes (Other)
  Sender: INCYTE
  Company Number: None

PATIENT
  Age: 75 Year

DRUGS (2)
  1. OPZELURA [Suspect]
     Active Substance: RUXOLITINIB PHOSPHATE
     Indication: Vitiligo
     Dosage: UNK, Q12H (UP TO 10% OF BODY SURFACE AREA 2X DAILY)
  2. OPZELURA [Suspect]
     Active Substance: RUXOLITINIB PHOSPHATE
     Route: 065

REACTIONS (2)
  - Eczema herpeticum [Recovered/Resolved]
  - Oral herpes [Recovered/Resolved]
